FAERS Safety Report 5154159-1 (Version None)
Quarter: 2006Q4

REPORT INFORMATION
  Report Type: 
  Country: None (occurrence: None)
  Receive Date: 20061120
  Receipt Date: 20060822
  Transmission Date: 20070319
  Serious: Yes (Disabling)
  Sender: FDA-Public Use
  Company Number: DE-AMGEN-UK190514

PATIENT
  Sex: Male
  Weight: 90 kg

DRUGS (10)
  1. MIMPARA [Suspect]
     Indication: HYPERPARATHYROIDISM SECONDARY
     Route: 048
     Dates: start: 20060501
  2. PLAVIX [Concomitant]
     Route: 048
     Dates: start: 20040101
  3. ACETASALICYLIC ACID [Concomitant]
     Route: 048
     Dates: start: 20030101
  4. ATORVASTATIN CALCIUM [Concomitant]
     Route: 048
     Dates: start: 20030101
  5. TOREM [Concomitant]
     Route: 048
     Dates: start: 20050101
  6. ALLOPURINOL [Concomitant]
     Route: 048
     Dates: start: 20050101
  7. RENAGEL [Concomitant]
     Route: 048
     Dates: start: 20060501
  8. ALFACALCIDOL [Concomitant]
     Route: 048
     Dates: start: 20050101
  9. OMEPRAZOLE [Concomitant]
     Route: 048
     Dates: start: 20050101
  10. BELOC ZOK [Concomitant]
     Route: 048
     Dates: start: 20030101

REACTIONS (5)
  - ABASIA [None]
  - JOINT SWELLING [None]
  - MUSCLE SWELLING [None]
  - MUSCLE TIGHTNESS [None]
  - OEDEMA PERIPHERAL [None]
